FAERS Safety Report 5193765-5 (Version None)
Quarter: 2006Q4

REPORT INFORMATION
  Report Type: 
  Country: None (occurrence: None)
  Receive Date: 20061228
  Receipt Date: 20061218
  Transmission Date: 20070319
  Serious: Yes (Other)
  Sender: FDA-Public Use
  Company Number: JP-JPN-A200605460

PATIENT
  Age: 69 Year
  Sex: Female

DRUGS (5)
  1. ZANTAC [Suspect]
     Indication: DRUG USE FOR UNKNOWN INDICATION
     Dosage: 50MG PER DAY
     Route: 042
     Dates: start: 20060616, end: 20060914
  2. SEROTONE [Concomitant]
     Indication: PROPHYLAXIS OF NAUSEA AND VOMITING
     Dosage: 10MG PER DAY
     Route: 042
     Dates: start: 20060616, end: 20060921
  3. DECADRON [Concomitant]
     Indication: ALLERGY PROPHYLAXIS
     Dosage: 4ML PER DAY
     Route: 042
     Dates: start: 20060616, end: 20060921
  4. TAXOL [Concomitant]
     Dosage: 90MG PER DAY
     Route: 042
     Dates: start: 20060616, end: 20060921
  5. HERCEPTIN [Concomitant]
     Dosage: 150MG PER DAY
     Route: 042
     Dates: start: 20060621, end: 20060921

REACTIONS (1)
  - LOSS OF CONSCIOUSNESS [None]
